FAERS Safety Report 4848855-0 (Version None)
Quarter: 2005Q4

REPORT INFORMATION
  Report Type: 
  Country: None (occurrence: None)
  Receive Date: 20051121
  Receipt Date: 20051006
  Transmission Date: 20060501
  Serious: Yes (Death)
  Sender: FDA-Public Use
  Company Number: 05P-163-0310736-00

PATIENT
  Sex: Male
  Weight: 59.4212 kg

DRUGS (7)
  1. DEPAKOTE ER [Suspect]
     Indication: AGITATION
     Dosage: 500 MG, AT NIGHT, PER ORAL
     Route: 048
     Dates: start: 20041201
  2. DEPAKOTE ER [Suspect]
     Indication: COGNITIVE DISORDER
     Dosage: 500 MG, AT NIGHT, PER ORAL
     Route: 048
     Dates: start: 20041201
  3. DEPAKOTE ER [Suspect]
     Indication: DEMENTIA
     Dosage: 500 MG, AT NIGHT, PER ORAL
     Route: 048
     Dates: start: 20041201
  4. DEPAKOTE ER [Suspect]
     Indication: PSYCHOTIC DISORDER
     Dosage: 500 MG, AT NIGHT, PER ORAL
     Route: 048
     Dates: start: 20041201
  5. TRILEPTAL [Concomitant]
  6. QUETIAPINE FUMARATE [Concomitant]
  7. GALANTAMINE HYDROBROMIDE [Concomitant]

REACTIONS (1)
  - GASTROINTESTINAL OBSTRUCTION [None]
